FAERS Safety Report 9188682 (Version 1)
Quarter: 2013Q1

REPORT INFORMATION
  Report Type: Spontaneous
  Country: US (occurrence: US)
  Receive Date: 20130325
  Receipt Date: 20130325
  Transmission Date: 20140127
  Serious: No
  Sender: FDA-Public Use
  Company Number: US-009507513-1303USA007941

PATIENT
  Sex: 0

DRUGS (16)
  1. FOSAMAX [Suspect]
     Route: 048
  2. VYTORIN [Concomitant]
     Dosage: 1 DF, QH
     Route: 048
  3. NEXIUM [Concomitant]
     Dosage: 40 MG, QD
     Route: 048
  4. DIAZEPAM [Concomitant]
     Indication: ANXIETY
     Dosage: 1 DF, BID PRN
     Route: 048
  5. CHANTIX [Concomitant]
  6. GABAPENTIN [Concomitant]
     Dosage: 600 MG, BID
  7. LOPID [Concomitant]
     Dosage: 600 MG, BID
     Route: 048
  8. FLONASE [Concomitant]
     Indication: HYPERSENSITIVITY
     Dosage: 2 SPRAY(S) IN EACH NOSTRIL DAILY, PRN
  9. LEXAPRO [Concomitant]
     Dosage: 20 MG, QD
     Route: 048
  10. ALBUTEROL [Concomitant]
     Indication: DYSPNOEA
     Dosage: 1 VIAL(S) BY NEBULIZER Q 4-6 HRS, PRN
  11. SYMBICORT [Concomitant]
     Dosage: 2 INHALATIONS, BID
     Route: 055
  12. NORCO [Concomitant]
     Indication: PAIN
     Dosage: 1 TABLET, BID PRN
     Route: 048
  13. DALIRESP [Concomitant]
  14. VALIUM [Concomitant]
     Indication: ANXIETY
     Dosage: BID PRN
     Route: 048
  15. ALEVE [Concomitant]
     Dosage: 1 DAILY
  16. CALTRATE WITH VITAMIN D [Concomitant]
     Dosage: 1500 MG, QD

REACTIONS (1)
  - Dyspepsia [Unknown]
